FAERS Safety Report 8396845-6 (Version None)
Quarter: 2012Q2

REPORT INFORMATION
  Report Type: 
  Country: None (occurrence: None)
  Receive Date: 20120530
  Receipt Date: 20120514
  Transmission Date: 20120825
  Serious: No
  Sender: FDA-Public Use
  Company Number: US-ASTRAZENECA-2012SE31049

PATIENT
  Sex: Female

DRUGS (3)
  1. VITAMIN TAB [Concomitant]
  2. NEXIUM [Suspect]
     Indication: GASTROOESOPHAGEAL REFLUX DISEASE
     Route: 048
  3. SUPPLEMENTS [Concomitant]

REACTIONS (7)
  - THROAT IRRITATION [None]
  - DRUG INEFFECTIVE [None]
  - CONSTIPATION [None]
  - ABDOMINAL PAIN UPPER [None]
  - DRY MOUTH [None]
  - OFF LABEL USE [None]
  - DYSPEPSIA [None]
